FAERS Safety Report 10983141 (Version 3)
Quarter: 2015Q2

REPORT INFORMATION
  Report Type: Report from Study
  Country: ZA (occurrence: ZA)
  Receive Date: 20150403
  Receipt Date: 20150428
  Transmission Date: 20150821
  Serious: Yes (Death)
  Sender: FDA-Public Use
  Company Number: ZA-ABBVIE-15P-143-1369455-00

PATIENT
  Age: 50 Year
  Sex: Female
  Weight: 52 kg

DRUGS (10)
  1. CRESTOR [Concomitant]
     Active Substance: ROSUVASTATIN CALCIUM
     Indication: HYPERCHOLESTEROLAEMIA
     Route: 048
     Dates: start: 20100714, end: 20150226
  2. NORVIR [Suspect]
     Active Substance: RITONAVIR
     Indication: HIV INFECTION
     Route: 048
     Dates: start: 20121015, end: 20150226
  3. REYATAZ [Concomitant]
     Active Substance: ATAZANAVIR SULFATE
     Indication: HIV INFECTION
     Route: 048
     Dates: start: 20121015, end: 20150225
  4. COMBIVIR [Concomitant]
     Active Substance: LAMIVUDINE\ZIDOVUDINE
     Route: 048
     Dates: start: 20121015, end: 201303
  5. COMBIVIR [Concomitant]
     Active Substance: LAMIVUDINE\ZIDOVUDINE
     Route: 048
     Dates: start: 201304, end: 20150226
  6. ALUVIA [Concomitant]
     Active Substance: LOPINAVIR\RITONAVIR
     Indication: HIV INFECTION
     Route: 048
     Dates: start: 20090318, end: 20150226
  7. TREPILINE [Concomitant]
     Active Substance: AMITRIPTYLINE
     Indication: NEUROPATHY PERIPHERAL
     Dosage: NOCTE
     Route: 048
     Dates: start: 20090916, end: 20150226
  8. COMBIVIR [Concomitant]
     Active Substance: LAMIVUDINE\ZIDOVUDINE
     Indication: HIV INFECTION
     Route: 048
     Dates: start: 20090318, end: 20121015
  9. TMC125 [Concomitant]
     Active Substance: ETRAVIRINE
     Dosage: 2 X 100 MG TABLETS BD (15 OCT 2012 FIRST NON-CLINICAL TRIAL DOSE)
     Route: 048
     Dates: start: 20130317, end: 20150226
  10. TMC125 [Concomitant]
     Active Substance: ETRAVIRINE
     Indication: HIV INFECTION
     Dosage: 2 X 100 MG TABLETS BD (FIRST NON-CLINICAL TRIAL DOSE
     Route: 048
     Dates: start: 20121015

REACTIONS (1)
  - Myocardial infarction [Fatal]

NARRATIVE: CASE EVENT DATE: 20150225
